FAERS Safety Report 5150628-9 (Version None)
Quarter: 2006Q4

REPORT INFORMATION
  Report Type: 
  Country: None (occurrence: None)
  Receive Date: 20061110
  Receipt Date: 20061110
  Transmission Date: 20070319
  Serious: Yes (Other)
  Sender: FDA-Public Use
  Company Number: None

PATIENT
  Age: 64 Year
  Sex: Male
  Weight: 90.7194 kg

DRUGS (5)
  1. EQUATE ACETAMINOPHEN  EXTRA STRENGTH    PERRIGO [Suspect]
     Indication: ANALGESIC EFFECT
     Dosage: 500 MG   1 ON 5 OCCASIONS   PO
     Route: 048
     Dates: start: 20061015, end: 20061104
  2. METHYPREDISONLONE [Concomitant]
  3. OXYCODONE HCL [Concomitant]
  4. FUROSEMIDE [Concomitant]
  5. POTASSIUM CL [Concomitant]

REACTIONS (1)
  - STOMACH DISCOMFORT [None]
